FAERS Safety Report 21781135 (Version 2)
Quarter: 2023Q1

REPORT INFORMATION
  Report Type: Report from Study
  Country: CA (occurrence: CA)
  Receive Date: 20221227
  Receipt Date: 20230131
  Transmission Date: 20230418
  Serious: Yes (Death, Hospitalization, Other)
  Sender: FDA-Public Use
  Company Number: CA-ABBVIE-4250068

PATIENT
  Age: 76 Year
  Sex: Female

DRUGS (1)
  1. RINVOQ [Suspect]
     Active Substance: UPADACITINIB
     Indication: Rheumatoid arthritis
     Route: 048
     Dates: start: 20200601

REACTIONS (7)
  - Death [Fatal]
  - Dementia [Unknown]
  - Traumatic haematoma [Unknown]
  - Influenza [Unknown]
  - Pneumonia aspiration [Unknown]
  - Pulmonary embolism [Unknown]
  - Delusional disorder, unspecified type [Unknown]

NARRATIVE: CASE EVENT DATE: 20220501
